FAERS Safety Report 6364291-2 (Version None)
Quarter: 2009Q3

REPORT INFORMATION
  Report Type: 
  Country: None (occurrence: None)
  Receive Date: 20090919
  Receipt Date: 20090720
  Transmission Date: 20100115
  Serious: No
  Sender: FDA-Public Use
  Company Number: US-ABBOTT-09P-163-0586807-00

PATIENT
  Sex: Male
  Weight: 56.75 kg

DRUGS (5)
  1. HUMIRA [Suspect]
     Indication: CROHN'S DISEASE
     Route: 058
     Dates: start: 20080331
  2. VICODIN [Concomitant]
     Indication: DRUG USE FOR UNKNOWN INDICATION
  3. LOMOTIL [Concomitant]
     Indication: DRUG USE FOR UNKNOWN INDICATION
  4. PROTOFOAM HC [Concomitant]
     Indication: DRUG USE FOR UNKNOWN INDICATION
  5. CANASA [Concomitant]
     Indication: DRUG USE FOR UNKNOWN INDICATION

REACTIONS (2)
  - INJECTION SITE HAEMATOMA [None]
  - INJECTION SITE PAIN [None]
